FAERS Safety Report 24727536 (Version 2)
Quarter: 2024Q4

REPORT INFORMATION
  Report Type: Spontaneous
  Country: US (occurrence: US)
  Receive Date: 20241212
  Receipt Date: 20241217
  Transmission Date: 20250115
  Serious: Yes (Other)
  Sender: PFIZER
  Company Number: US-PFIZER INC-202400320088

PATIENT

DRUGS (2)
  1. LORBRENA [Interacting]
     Active Substance: LORLATINIB
     Dosage: UNK
  2. ELIQUIS [Interacting]
     Active Substance: APIXABAN
     Indication: Thrombosis
     Dosage: UNK

REACTIONS (3)
  - Drug interaction [Unknown]
  - Disease recurrence [Unknown]
  - Thrombosis [Unknown]
